FAERS Safety Report 24628593 (Version 1)
Quarter: 2024Q4

REPORT INFORMATION
  Report Type: Spontaneous
  Country: CN (occurrence: CN)
  Receive Date: 20241117
  Receipt Date: 20241117
  Transmission Date: 20250114
  Serious: Yes (Other)
  Sender: ORGANON
  Company Number: CN-ORGANON-O2411CHN000904

PATIENT
  Age: 83 Year
  Sex: Female

DRUGS (2)
  1. HYZAAR [Suspect]
     Active Substance: HYDROCHLOROTHIAZIDE\LOSARTAN POTASSIUM
     Indication: Hypertension
     Dosage: ORAL, 50MG, QD
     Route: 048
     Dates: start: 20240401, end: 20240415
  2. SIMVASTATIN [Concomitant]
     Active Substance: SIMVASTATIN
     Indication: Hyperlipidaemia
     Dosage: ORAL, 20MG, QD
     Route: 048
     Dates: start: 20240610, end: 20241108

REACTIONS (5)
  - Arrhythmia [Unknown]
  - Chest discomfort [Recovering/Resolving]
  - Palpitations [Recovered/Resolved]
  - Tachycardia [Recovered/Resolved]
  - Cardiac murmur [Unknown]

NARRATIVE: CASE EVENT DATE: 20240410
